FAERS Safety Report 6922401-X (Version None)
Quarter: 2010Q3

REPORT INFORMATION
  Report Type: 
  Country: None (occurrence: None)
  Receive Date: 20100813
  Receipt Date: 20100804
  Transmission Date: 20110219
  Serious: Yes (Death)
  Sender: FDA-Public Use
  Company Number: GB-JNJFOC-20040703220

PATIENT
  Age: 16 Month

DRUGS (1)
  1. CHILDREN'S IBUPROFEN [Suspect]
     Indication: PRODUCT USED FOR UNKNOWN INDICATION
     Dosage: 469 MG/KG

REACTIONS (6)
  - APNOEA [None]
  - ASPIRATION [None]
  - CONVULSION [None]
  - OVERDOSE [None]
  - PNEUMONITIS [None]
  - SEPSIS [None]
